FAERS Safety Report 8522288-8 (Version None)
Quarter: 2012Q3

REPORT INFORMATION
  Report Type: 
  Country: None (occurrence: None)
  Receive Date: 20120719
  Receipt Date: 20120716
  Transmission Date: 20120928
  Serious: Yes (Life-Threatening)
  Sender: FDA-Public Use
  Company Number: PHHO2012DE009540

PATIENT
  Sex: Female
  Weight: 58 kg

DRUGS (6)
  1. RAMIPRIL [Concomitant]
     Dosage: UNK
  2. ASPIRIN [Concomitant]
     Dosage: 100 MG, QD
  3. PANTOPRAZOLE [Concomitant]
     Dosage: 20 MG, QD
  4. GILENYA [Suspect]
     Indication: MULTIPLE SCLEROSIS
     Dosage: 0.5 MG, UNK
     Route: 048
     Dates: start: 20110125
  5. ISCOVER [Concomitant]
     Dosage: UNK
  6. METOPROLOL SUCCINATE [Concomitant]
     Dosage: 47.5 MG, QD

REACTIONS (1)
  - MYOCARDIAL INFARCTION [None]
